FAERS Safety Report 25923684 (Version 1)
Quarter: 2025Q4

REPORT INFORMATION
  Report Type: Report from Study
  Country: CA (occurrence: CA)
  Receive Date: 20251015
  Receipt Date: 20251015
  Transmission Date: 20260117
  Serious: Yes (Hospitalization, Other)
  Sender: JOHNSON AND JOHNSON
  Company Number: CA-JNJFOC-20250613676

PATIENT
  Age: 57 Year
  Sex: Female
  Weight: 69.1 kg

DRUGS (1)
  1. REMICADE [Suspect]
     Active Substance: INFLIXIMAB
     Indication: Colitis ulcerative
     Route: 041
     Dates: start: 20240506

REACTIONS (8)
  - Conversion disorder [Not Recovered/Not Resolved]
  - Spinal fracture [Unknown]
  - Pulmonary embolism [Unknown]
  - Haematoma [Unknown]
  - Fall [Not Recovered/Not Resolved]
  - Muscle twitching [Unknown]
  - Syncope [Unknown]
  - Magnetic resonance imaging abnormal [Unknown]

NARRATIVE: CASE EVENT DATE: 20250526
